FAERS Safety Report 6431238-X (Version None)
Quarter: 2009Q4

REPORT INFORMATION
  Report Type: 
  Country: None (occurrence: None)
  Receive Date: 20091106
  Receipt Date: 20091026
  Transmission Date: 20100525
  Serious: Yes (Other)
  Sender: FDA-Public Use
  Company Number: US-PFIZER INC-2009289084

PATIENT
  Sex: Female

DRUGS (4)
  1. GEODON [Suspect]
  2. ABILIFY [Suspect]
  3. ZYPREXA [Suspect]
  4. RISPERDAL [Suspect]

REACTIONS (2)
  - AKATHISIA [None]
  - BIPOLAR I DISORDER [None]
